FAERS Safety Report 5465899-9 (Version None)
Quarter: 2007Q3

REPORT INFORMATION
  Report Type: 
  Country: None (occurrence: None)
  Receive Date: 20070924
  Receipt Date: 20070919
  Transmission Date: 20080115
  Serious: No
  Sender: FDA-Public Use
  Company Number: US-AVENTIS-200716646US

PATIENT
  Sex: Female
  Weight: 56.8 kg

DRUGS (1)
  1. ARAVA [Suspect]
     Route: 048
     Dates: start: 20060301, end: 20070901

REACTIONS (1)
  - DRUG EXPOSURE DURING PREGNANCY [None]
